FAERS Safety Report 20863625 (Version 1)
Quarter: 2022Q2

REPORT INFORMATION
  Report Type: Spontaneous
  Country: None (occurrence: FR)
  Receive Date: 20220523
  Receipt Date: 20220523
  Transmission Date: 20220721
  Serious: Yes (Hospitalization)
  Sender: FDA-Public Use
  Company Number: FR-HILL DERMACEUTICALS, INC.-2129079

PATIENT
  Age: 79 Year

DRUGS (1)
  1. TOLAK [Suspect]
     Active Substance: FLUOROURACIL

REACTIONS (1)
  - Cardiac failure [Not Recovered/Not Resolved]
